FAERS Safety Report 10467869 (Version 3)
Quarter: 2014Q4

REPORT INFORMATION
  Report Type: Report from Study
  Country: BR (occurrence: BR)
  Receive Date: 20140922
  Receipt Date: 20141003
  Transmission Date: 20150528
  Serious: Yes (Other)
  Sender: FDA-Public Use
  Company Number: PHHY2014BR111937

PATIENT
  Sex: Female
  Weight: 60 kg

DRUGS (2)
  1. DIOVAN AMLO FIX [Suspect]
     Active Substance: AMLODIPINE\VALSARTAN
     Indication: HYPERTENSION
     Dosage: 1 DF (160/5 MG), QD (IN THE MORNING)
     Route: 048
  2. PURAN [Concomitant]
     Active Substance: LEVOTHYROXINE SODIUM
     Indication: THYROID DISORDER
     Dosage: 1 DF (50 MG), DAILY
     Route: 048

REACTIONS (4)
  - Blood pressure inadequately controlled [Unknown]
  - Cholelithiasis [Unknown]
  - Blood cholesterol increased [Unknown]
  - Hypertension [Recovering/Resolving]
